FAERS Safety Report 13155573 (Version 1)
Quarter: 2017Q1

REPORT INFORMATION
  Report Type: Spontaneous
  Country: ID (occurrence: ID)
  Receive Date: 20170126
  Receipt Date: 20170126
  Transmission Date: 20170428
  Serious: Yes (Other)
  Sender: FDA-Public Use
  Company Number: ID-BAUSCH-BL-2017-001839

PATIENT
  Age: 60 Year
  Sex: Female

DRUGS (1)
  1. ATROPINE SULPHATE [Suspect]
     Active Substance: ATROPINE SULFATE
     Indication: ATRIOVENTRICULAR BLOCK
     Route: 042

REACTIONS (1)
  - Drug resistance [Unknown]
